FAERS Safety Report 5059835-7 (Version None)
Quarter: 2006Q3

REPORT INFORMATION
  Report Type: 
  Country: None (occurrence: None)
  Receive Date: 20060724
  Receipt Date: 20060719
  Transmission Date: 20061208
  Serious: Yes (Hospitalization)
  Sender: FDA-Public Use
  Company Number: 2006AP03336

PATIENT
  Age: 25776 Day
  Sex: Male
  Weight: 69 kg

DRUGS (5)
  1. CRESTOR [Suspect]
     Indication: HYPERLIPIDAEMIA
     Route: 048
     Dates: start: 20060522, end: 20060529
  2. CRESTOR [Suspect]
     Route: 048
     Dates: start: 20060607, end: 20060607
  3. AMODIPIN [Concomitant]
     Indication: HYPERTENSION
     Route: 048
     Dates: start: 20050627
  4. HARNAL [Concomitant]
     Indication: DYSURIA
     Route: 048
     Dates: start: 20050602
  5. ASPIRIN [Concomitant]
     Indication: THROMBOSIS PROPHYLAXIS
     Route: 048
     Dates: start: 20050618

REACTIONS (1)
  - ANGINA UNSTABLE [None]
